FAERS Safety Report 8412231-4 (Version None)
Quarter: 2012Q2

REPORT INFORMATION
  Report Type: 
  Country: None (occurrence: None)
  Receive Date: 20120605
  Receipt Date: 20120523
  Transmission Date: 20120825
  Serious: Yes (Death)
  Sender: FDA-Public Use
  Company Number: US-CELGENEUS-163-21660-12033583

PATIENT
  Sex: Female

DRUGS (2)
  1. ABRAXANE [Suspect]
     Dosage: 300 MILLIGRAM
     Route: 041
     Dates: start: 20111201, end: 20120119
  2. ABRAXANE [Suspect]
     Indication: OVARIAN CANCER
     Dosage: 338 MILLIGRAM
     Route: 041
     Dates: start: 20110902, end: 20110101

REACTIONS (1)
  - OVARIAN CANCER [None]
